FAERS Safety Report 5252728-1 (Version None)
Quarter: 2007Q1

REPORT INFORMATION
  Report Type: 
  Country: None (occurrence: None)
  Receive Date: 20070301
  Receipt Date: 20061117
  Transmission Date: 20070707
  Serious: No
  Sender: FDA-Public Use
  Company Number: US-GLAXOSMITHKLINE-A0627947A

PATIENT
  Age: 15 Year
  Sex: Female

DRUGS (6)
  1. LAMICTAL [Suspect]
     Dosage: 200MG PER DAY
     Route: 048
     Dates: start: 20061001
  2. ORTHO CYCLEN-28 [Suspect]
  3. CLOMIPRAMINE HCL [Concomitant]
  4. BUSPAR [Concomitant]
  5. CLARITIN [Concomitant]
  6. ALLERGY SHOTS [Concomitant]

REACTIONS (8)
  - DRUG INTERACTION [None]
  - DYSMENORRHOEA [None]
  - FATIGUE [None]
  - HEADACHE [None]
  - HYPERACUSIS [None]
  - HYPERSOMNIA [None]
  - MIGRAINE [None]
  - PHOTOSENSITIVITY REACTION [None]
